FAERS Safety Report 9190471 (Version 1)
Quarter: 2013Q1

REPORT INFORMATION
  Report Type: Report from Study
  Country: VE (occurrence: VE)
  Receive Date: 20130326
  Receipt Date: 20130326
  Transmission Date: 20140127
  Serious: Yes (Hospitalization, Other)
  Sender: FDA-Public Use
  Company Number: VE-ABBOTT-13P-178-1066375-00

PATIENT
  Sex: Female
  Weight: 52 kg

DRUGS (5)
  1. HUMIRA [Suspect]
     Indication: RHEUMATOID ARTHRITIS
     Route: 058
     Dates: start: 2007, end: 201212
  2. DIAFORMINA PLUS [Concomitant]
     Indication: DIABETES MELLITUS
     Dosage: DAILY
     Route: 048
     Dates: start: 201206, end: 201212
  3. LANTUS [Concomitant]
     Indication: DIABETES MELLITUS
     Route: 058
     Dates: start: 201201
  4. METHOTREXATE [Concomitant]
     Indication: RHEUMATOID ARTHRITIS
     Route: 030
  5. EUTHYROX [Concomitant]
     Indication: HYPOTHYROIDISM
     Dosage: VO

REACTIONS (2)
  - Hepatotoxicity [Recovered/Resolved]
  - Osteoporosis [Unknown]
